FAERS Safety Report 14423405 (Version 3)
Quarter: 2018Q1

REPORT INFORMATION
  Report Type: Spontaneous
  Country: US (occurrence: US)
  Receive Date: 20180123
  Receipt Date: 20180126
  Transmission Date: 20180509
  Serious: No
  Sender: FDA-Public Use
  Company Number: US-PFIZER INC-2018026054

PATIENT
  Age: 54 Year
  Sex: Female

DRUGS (4)
  1. LISINOPRIL AND HYDROCHLOROTHIAZIDE [Concomitant]
     Active Substance: HYDROCHLOROTHIAZIDE\LISINOPRIL
     Indication: HYPERTENSION
     Dosage: UNK LISINOPRIL- 20MG]/[HYDROCHLORTHIAZIDE- 12.5MG]
  2. EFFEXOR XR [Suspect]
     Active Substance: VENLAFAXINE HYDROCHLORIDE
     Indication: GENERALISED ANXIETY DISORDER
     Dosage: 75 MG, DAILY
  3. EFFEXOR XR [Suspect]
     Active Substance: VENLAFAXINE HYDROCHLORIDE
     Dosage: UNK
     Route: 048
  4. EFFEXOR XR [Suspect]
     Active Substance: VENLAFAXINE HYDROCHLORIDE
     Dosage: 37.5 MG, 1X/DAY

REACTIONS (6)
  - Influenza like illness [Unknown]
  - Anxiety [Recovered/Resolved]
  - Withdrawal syndrome [Unknown]
  - Feeling abnormal [Recovered/Resolved]
  - Drug effect incomplete [Unknown]
  - Paraesthesia [Unknown]

NARRATIVE: CASE EVENT DATE: 201607
